FAERS Safety Report 5266039-1 (Version None)
Quarter: 2007Q1

REPORT INFORMATION
  Report Type: 
  Country: None (occurrence: None)
  Receive Date: 20070313
  Receipt Date: 20070313
  Transmission Date: 20070707
  Serious: No
  Sender: FDA-Public Use
  Company Number: None

PATIENT
  Age: 61 Year
  Sex: Male

DRUGS (2)
  1. ROSUVASTATIN [Suspect]
     Dosage: 20MG EVERY DAY PO
     Route: 048
     Dates: start: 20061008, end: 20070122
  2. FENOFIBRATE [Suspect]
     Dosage: 145MG EVERY DAY PO
     Route: 048
     Dates: start: 20061202, end: 20070122

REACTIONS (3)
  - BLOOD CREATININE INCREASED [None]
  - BLOOD UREA INCREASED [None]
  - NEPHROTIC SYNDROME [None]
